FAERS Safety Report 8365379-7 (Version None)
Quarter: 2012Q2

REPORT INFORMATION
  Report Type: 
  Country: None (occurrence: None)
  Receive Date: 20120516
  Receipt Date: 20120509
  Transmission Date: 20120825
  Serious: Yes (Other)
  Sender: FDA-Public Use
  Company Number: BR-PFIZER INC-2012114124

PATIENT
  Age: 59 Year
  Sex: Female

DRUGS (1)
  1. XALATAN [Suspect]
     Indication: INTRAOCULAR PRESSURE INCREASED
     Dosage: 3 UG (1 DROP EACH EYE), UNK
     Route: 047
     Dates: start: 20040101, end: 20070101

REACTIONS (2)
  - EYE DEGENERATIVE DISORDER [None]
  - BLINDNESS UNILATERAL [None]
